FAERS Safety Report 16070359 (Version 14)
Quarter: 2023Q2

REPORT INFORMATION
  Report Type: Report from Study
  Country: CH (occurrence: CH)
  Receive Date: 20190314
  Receipt Date: 20230427
  Transmission Date: 20230721
  Serious: Yes (Death, Hospitalization, Other)
  Sender: FDA-Public Use
  Company Number: CH-ABBVIE-19K-151-2609940-00

PATIENT
  Age: 68 Year
  Sex: Male
  Weight: 58 kg

DRUGS (45)
  1. VENETOCLAX [Suspect]
     Active Substance: VENETOCLAX
     Indication: Chronic lymphocytic leukaemia
     Route: 048
     Dates: start: 20181023, end: 20181029
  2. VENETOCLAX [Suspect]
     Active Substance: VENETOCLAX
     Indication: Chronic lymphocytic leukaemia
     Route: 048
     Dates: start: 20181030, end: 20181105
  3. VENETOCLAX [Suspect]
     Active Substance: VENETOCLAX
     Indication: Chronic lymphocytic leukaemia
     Route: 048
     Dates: start: 20181106, end: 20181112
  4. VENETOCLAX [Suspect]
     Active Substance: VENETOCLAX
     Indication: Chronic lymphocytic leukaemia
     Route: 048
     Dates: start: 20181113, end: 20181119
  5. VENETOCLAX [Suspect]
     Active Substance: VENETOCLAX
     Indication: Chronic lymphocytic leukaemia
     Route: 048
     Dates: start: 20181120, end: 20181126
  6. VENETOCLAX [Suspect]
     Active Substance: VENETOCLAX
     Indication: Chronic lymphocytic leukaemia
     Route: 048
     Dates: start: 20181127, end: 20190205
  7. TENORMIN [Concomitant]
     Active Substance: ATENOLOL
     Indication: Myocardial ischaemia
     Route: 048
     Dates: start: 20181018, end: 20181024
  8. TENORMIN [Concomitant]
     Active Substance: ATENOLOL
     Indication: Myocardial ischaemia
     Route: 048
     Dates: start: 20151126, end: 20190325
  9. ATORVASTATIN CALCIUM [Concomitant]
     Active Substance: ATORVASTATIN CALCIUM
     Indication: Dyslipidaemia
     Route: 048
     Dates: start: 20181005, end: 20190325
  10. TORSEMIDE [Concomitant]
     Active Substance: TORSEMIDE
     Indication: Oedema
     Route: 048
     Dates: start: 20190322, end: 20190326
  11. PANTOZOL [Concomitant]
     Active Substance: PANTOPRAZOLE SODIUM
     Indication: Prophylaxis of nausea and vomiting
     Route: 048
     Dates: start: 20151126, end: 20190328
  12. ENSURE [Concomitant]
     Active Substance: AMINO ACIDS\DEXTROSE\ELECTROLYTES NOS\SOYBEAN OIL\VITAMINS
     Indication: Vitamin supplementation
     Route: 048
     Dates: start: 20190312, end: 20190325
  13. MINERAL OIL\PHENOLPHTHALEIN [Concomitant]
     Active Substance: MINERAL OIL\PHENOLPHTHALEIN
     Indication: Laxative supportive care
     Dosage: AS NEEDED
     Route: 048
     Dates: start: 20190319, end: 20190319
  14. MINERAL OIL\PHENOLPHTHALEIN [Concomitant]
     Active Substance: MINERAL OIL\PHENOLPHTHALEIN
     Indication: Laxative supportive care
     Dosage: AS NEEDED
     Route: 048
     Dates: start: 20190323, end: 20190323
  15. MINERAL OIL\PHENOLPHTHALEIN [Concomitant]
     Active Substance: MINERAL OIL\PHENOLPHTHALEIN
     Indication: Laxative supportive care
     Dosage: AS NEEDED
     Route: 048
     Dates: start: 20190324, end: 20190324
  16. MINERAL OIL\PHENOLPHTHALEIN [Concomitant]
     Active Substance: MINERAL OIL\PHENOLPHTHALEIN
     Indication: Laxative supportive care
     Dosage: AS NEEDED
     Route: 048
     Dates: start: 20190327, end: 20190327
  17. HERBALS [Concomitant]
     Active Substance: HERBALS
     Indication: Laxative supportive care
     Dosage: AS NEEDED
     Route: 048
     Dates: start: 20190319, end: 20190319
  18. HERBALS [Concomitant]
     Active Substance: HERBALS
     Indication: Laxative supportive care
     Dosage: AS NEEDED
     Route: 048
     Dates: start: 20190323, end: 20190323
  19. HERBALS [Concomitant]
     Active Substance: HERBALS
     Indication: Laxative supportive care
     Dosage: AS NEEDED
     Route: 048
     Dates: start: 20190324, end: 20190324
  20. HERBALS [Concomitant]
     Active Substance: HERBALS
     Indication: Laxative supportive care
     Dosage: AS NEEDED
     Route: 048
     Dates: start: 20190327, end: 20190327
  21. MYCOSTATIN [Concomitant]
     Active Substance: NYSTATIN
     Indication: Prophylaxis
     Route: 002
     Dates: start: 20181106, end: 20190328
  22. ALLOPURINOL [Concomitant]
     Active Substance: ALLOPURINOL
     Indication: Prophylaxis
     Route: 048
     Dates: start: 20181020, end: 20190328
  23. DAFALGAN [Concomitant]
     Active Substance: ACETAMINOPHEN
     Indication: Pain
     Route: 048
     Dates: start: 20190318, end: 20190327
  24. LYRICA [Concomitant]
     Active Substance: PREGABALIN
     Indication: Neuropathy peripheral
     Route: 048
     Dates: start: 20180920, end: 20181031
  25. CHLORAL HYDRATE [Concomitant]
     Active Substance: CHLORAL HYDRATE
     Indication: Agitation
     Route: 048
     Dates: end: 20190324
  26. BACTRIM [Concomitant]
     Active Substance: SULFAMETHOXAZOLE\TRIMETHOPRIM
     Indication: Antifungal prophylaxis
     Dosage: 800 MG / 160 MG
     Route: 048
     Dates: start: 20160120, end: 20190327
  27. BACTRIM [Concomitant]
     Active Substance: SULFAMETHOXAZOLE\TRIMETHOPRIM
     Indication: Antifungal prophylaxis
     Dosage: TIME INTERVAL: 0.33333333 WEEKS
     Route: 048
     Dates: start: 20160120
  28. VALACYCLOVIR HYDROCHLORIDE [Concomitant]
     Active Substance: VALACYCLOVIR HYDROCHLORIDE
     Indication: Antiviral prophylaxis
     Route: 048
     Dates: start: 20160120, end: 20190328
  29. ASCORBIC ACID\MINERALS\VITAMINS [Concomitant]
     Active Substance: ASCORBIC ACID\MINERALS\VITAMINS
     Indication: Vitamin supplementation
     Route: 048
     Dates: start: 20190316, end: 20190328
  30. FILGRASTIM [Concomitant]
     Active Substance: FILGRASTIM
     Indication: Neutropenia
     Dosage: AS NEEDED
     Route: 058
     Dates: start: 20190313, end: 20190313
  31. FILGRASTIM [Concomitant]
     Active Substance: FILGRASTIM
     Indication: Neutropenia
     Dosage: AS NEEDED
     Route: 058
     Dates: start: 20190315, end: 20190315
  32. FILGRASTIM [Concomitant]
     Active Substance: FILGRASTIM
     Indication: Neutropenia
     Dosage: AS NEEDED
     Route: 058
     Dates: start: 20190320, end: 20190320
  33. FILGRASTIM [Concomitant]
     Active Substance: FILGRASTIM
     Indication: Neutropenia
     Dosage: AS NEEDED
     Route: 058
     Dates: start: 20190321, end: 20190321
  34. TRANEXAMIC ACID [Concomitant]
     Active Substance: TRANEXAMIC ACID
     Indication: Haemorrhage
     Dosage: AS NEEDED
     Route: 042
     Dates: start: 20190312, end: 20190312
  35. COLISTIN [Concomitant]
     Active Substance: COLISTIN
     Indication: Infection prophylaxis
     Route: 042
     Dates: start: 20181211, end: 20190328
  36. PIPERACILLIN SODIUM\TAZOBACTAM SODIUM [Concomitant]
     Active Substance: PIPERACILLIN SODIUM\TAZOBACTAM SODIUM
     Indication: Pneumonia
     Route: 042
     Dates: start: 20190318, end: 20190325
  37. MEROPENEM [Concomitant]
     Active Substance: MEROPENEM
     Indication: Pneumonia
     Route: 042
     Dates: start: 20190325, end: 20190330
  38. ATROVENT [Concomitant]
     Active Substance: IPRATROPIUM BROMIDE
     Indication: Chronic obstructive pulmonary disease
     Route: 055
     Dates: start: 20190318, end: 20190328
  39. VENTOLIN [Concomitant]
     Active Substance: ALBUTEROL SULFATE
     Indication: Chronic obstructive pulmonary disease
     Route: 055
     Dates: start: 20190318, end: 20190328
  40. FLUIMUCIL [Concomitant]
     Active Substance: ACETYLCYSTEINE
     Indication: Pneumonia
     Route: 048
     Dates: start: 20190320, end: 20190328
  41. BUTYLSCOPOLAMINE BROMIDE [Concomitant]
     Active Substance: BUTYLSCOPOLAMINE BROMIDE
     Indication: Dyspnoea
     Route: 042
     Dates: start: 20190328
  42. MORPHINE [Concomitant]
     Active Substance: MORPHINE
     Indication: Pain
     Route: 042
     Dates: start: 20190329
  43. CILASTATIN SODIUM\IMIPENEM [Concomitant]
     Active Substance: CILASTATIN SODIUM\IMIPENEM
     Indication: Product used for unknown indication
     Route: 048
     Dates: start: 20181005, end: 20181024
  44. TOBRAMYCIN [Concomitant]
     Active Substance: TOBRAMYCIN
     Indication: Product used for unknown indication
     Route: 048
     Dates: start: 20181005, end: 20181023
  45. ALLOPURINOL [Concomitant]
     Active Substance: ALLOPURINOL
     Indication: Product used for unknown indication
     Route: 048
     Dates: start: 20181020, end: 20181024

REACTIONS (17)
  - Chronic lymphocytic leukaemia [Fatal]
  - Splenomegaly [Unknown]
  - Haemorrhage [Not Recovered/Not Resolved]
  - Thoracotomy [Unknown]
  - Nodule [Recovered/Resolved]
  - Lung adenocarcinoma [Not Recovered/Not Resolved]
  - Richter^s syndrome [Unknown]
  - Pain [Recovered/Resolved]
  - Tongue discolouration [Recovered/Resolved]
  - Pallor [Recovered/Resolved]
  - Dyspnoea [Unknown]
  - Cough [Recovered/Resolved]
  - Fatigue [Recovered/Resolved]
  - Diarrhoea [Recovered/Resolved]
  - Fatigue [Recovered/Resolved]
  - Fatigue [Recovered/Resolved]
  - Pain [Unknown]

NARRATIVE: CASE EVENT DATE: 20181106
